FAERS Safety Report 4715445-X (Version None)
Quarter: 2005Q3

REPORT INFORMATION
  Report Type: 
  Country: None (occurrence: None)
  Receive Date: 20050713
  Receipt Date: 20050705
  Transmission Date: 20060218
  Serious: Yes (Other)
  Sender: FDA-Public Use
  Company Number: 2005072219

PATIENT
  Sex: Female
  Weight: 72.5755 kg

DRUGS (4)
  1. BEXTRA [Suspect]
     Indication: ARTHROPATHY
     Dosage: 20 MG (20 MG, 1 IN 1 D), ORAL
     Route: 048
  2. PROZAC [Concomitant]
  3. PREMPRO [Concomitant]
  4. XANAX [Concomitant]

REACTIONS (3)
  - COLONIC POLYP [None]
  - DRUG INEFFECTIVE [None]
  - INADEQUATE ANALGESIA [None]
